FAERS Safety Report 17674594 (Version 1)
Quarter: 2020Q2

REPORT INFORMATION
  Report Type: Spontaneous
  Country: US (occurrence: US)
  Receive Date: 20200416
  Receipt Date: 20200416
  Transmission Date: 20200714
  Serious: No
  Sender: FDA-Public Use
  Company Number: US-MELINTA THERAPEUTICS, INC-US-MLNT-20-00061

PATIENT
  Sex: Female

DRUGS (1)
  1. BAXDELA [Suspect]
     Active Substance: DELAFLOXACIN MEGLUMINE
     Indication: INFECTION PROPHYLAXIS
     Dosage: NOT PROVIDED.
     Route: 048

REACTIONS (4)
  - Product use issue [Unknown]
  - Drug effective for unapproved indication [Unknown]
  - Fungal infection [Unknown]
  - Off label use [Unknown]
